FAERS Safety Report 13945443 (Version 4)
Quarter: 2017Q4

REPORT INFORMATION
  Report Type: Spontaneous
  Country: US (occurrence: US)
  Receive Date: 20170907
  Receipt Date: 20171201
  Transmission Date: 20180320
  Serious: No
  Sender: FDA-Public Use
  Company Number: US-PFIZER INC-2017382479

PATIENT
  Age: 41 Year
  Sex: Male
  Weight: 93.44 kg

DRUGS (2)
  1. VIAGRA [Suspect]
     Active Substance: SILDENAFIL CITRATE
     Indication: ERECTILE DYSFUNCTION
     Dosage: UNK, AS NEEDED
     Route: 048
     Dates: start: 201501
  2. VIAGRA [Suspect]
     Active Substance: SILDENAFIL CITRATE
     Dosage: 100 MG, AS NEEDED; (1 PO A DAY)
     Route: 048
     Dates: start: 2017, end: 2017

REACTIONS (2)
  - Product quality issue [Recovered/Resolved]
  - Drug ineffective [Recovered/Resolved]

NARRATIVE: CASE EVENT DATE: 201708
